FAERS Safety Report 10584576 (Version 2)
Quarter: 2014Q4

REPORT INFORMATION
  Report Type: Spontaneous
  Country: JP (occurrence: JP)
  Receive Date: 20141114
  Receipt Date: 20141222
  Transmission Date: 20150529
  Serious: Yes (Death, Other)
  Sender: FDA-Public Use
  Company Number: JP-PFIZER INC-2014311576

PATIENT
  Age: 90 Year
  Sex: Male

DRUGS (10)
  1. SOLU-MEDROL [Suspect]
     Active Substance: METHYLPREDNISOLONE SODIUM SUCCINATE
     Dosage: UNK
     Route: 042
  2. PAZUFLOXACIN [Concomitant]
     Active Substance: PAZUFLOXACIN
     Indication: PNEUMONIA
     Dosage: 500 MG, DAILY
  3. PIOGLITAZON [Concomitant]
     Indication: DIABETES MELLITUS
     Dosage: 30 MG
  4. SOLU-MEDROL [Suspect]
     Active Substance: METHYLPREDNISOLONE SODIUM SUCCINATE
     Dosage: 500MG DAILY
     Route: 042
  5. AMPICILLIN/SULBACTAM [Concomitant]
     Indication: PNEUMONIA ASPIRATION
     Dosage: 4.5 G, DAILY
  6. VALPROATE NA [Concomitant]
     Indication: EPILEPSY
     Dosage: GRADUALLY INCREASED
  7. MEROPENEM. [Concomitant]
     Active Substance: MEROPENEM
     Indication: PNEUMONIA
     Dosage: 1.5 G, DAILY
  8. FLUCONAZOLE. [Concomitant]
     Active Substance: FLUCONAZOLE
  9. CILOSTAZOL. [Concomitant]
     Active Substance: CILOSTAZOL
     Indication: PROPHYLAXIS
     Dosage: 200 MG
  10. VALPROATE NA [Concomitant]
     Dosage: 1200 MG

REACTIONS (3)
  - Condition aggravated [Fatal]
  - Pulmonary tuberculosis [Fatal]
  - Lymphocyte count decreased [Not Recovered/Not Resolved]
